FAERS Safety Report 6774366-1 (Version None)
Quarter: 2010Q2

REPORT INFORMATION
  Report Type: 
  Country: None (occurrence: None)
  Receive Date: 20100617
  Receipt Date: 20100608
  Transmission Date: 20101027
  Serious: Yes (Life-Threatening, Hospitalization, Other)
  Sender: FDA-Public Use
  Company Number: US-BAYER-201022016NA

PATIENT
  Age: 77 Year
  Sex: Female

DRUGS (4)
  1. AVELOX [Suspect]
     Indication: ABDOMINAL OPERATION
     Route: 042
  2. CORTICOSTEROIDS [Concomitant]
     Route: 042
  3. BRONCHODILATORS [Concomitant]
  4. LOVENOX [Concomitant]

REACTIONS (3)
  - PSYCHOTIC DISORDER [None]
  - TORSADE DE POINTES [None]
  - VENTRICULAR FIBRILLATION [None]
